FAERS Safety Report 13339779 (Version 1)
Quarter: 2017Q1

REPORT INFORMATION
  Report Type: Spontaneous
  Country: US (occurrence: US)
  Receive Date: 20170315
  Receipt Date: 20170315
  Transmission Date: 20170428
  Serious: No
  Sender: FDA-Public Use
  Company Number: US-JNJFOC-20170302747

PATIENT
  Age: 90 Year
  Sex: Female
  Weight: 45.36 kg

DRUGS (2)
  1. ZYRTEC [Suspect]
     Active Substance: CETIRIZINE HYDROCHLORIDE
     Route: 048
  2. ZYRTEC [Suspect]
     Active Substance: CETIRIZINE HYDROCHLORIDE
     Indication: RASH
     Dosage: 1/2 TABLET OF 10 MG
     Route: 048
     Dates: start: 20170228

REACTIONS (2)
  - Drug administration error [Unknown]
  - Product use issue [Unknown]

NARRATIVE: CASE EVENT DATE: 20170228
